FAERS Safety Report 20517146 (Version 1)
Quarter: 2022Q1

REPORT INFORMATION
  Report Type: Spontaneous
  Country: DE (occurrence: None)
  Receive Date: 20220225
  Receipt Date: 20220225
  Transmission Date: 20220423
  Serious: Yes (Other)
  Sender: FDA-Public Use
  Company Number: DE-Merck Healthcare KGaA-9300508

PATIENT
  Age: 7 Year
  Sex: Male
  Weight: 31 kg

DRUGS (2)
  1. SAIZEN [Suspect]
     Active Substance: SOMATROPIN
     Indication: Small for dates baby
     Dosage: 0.9 (UNIT UNSPECIFIED)
     Route: 058
     Dates: start: 20181113, end: 20220205
  2. SAIZEN [Suspect]
     Active Substance: SOMATROPIN
     Indication: Short stature

REACTIONS (1)
  - Perthes disease [Not Recovered/Not Resolved]

NARRATIVE: CASE EVENT DATE: 20220124
